FAERS Safety Report 6369243-4 (Version None)
Quarter: 2009Q3

REPORT INFORMATION
  Report Type: 
  Country: None (occurrence: None)
  Receive Date: 20090916
  Receipt Date: 20090908
  Transmission Date: 20100115
  Serious: Yes (Hospitalization, Other)
  Sender: FDA-Public Use
  Company Number: ADR20712009

PATIENT
  Age: 49 Year
  Sex: Female

DRUGS (4)
  1. SERTRALINE HCL [Suspect]
  2. RISPERIDONE [Suspect]
  3. ACETAMINOPHEN WITH PROPOXYPHENE HCL TAB [Concomitant]
  4. PARACETAMOL [Concomitant]

REACTIONS (6)
  - BRAIN OEDEMA [None]
  - CSF GLUCOSE DECREASED [None]
  - HEPATIC ENCEPHALOPATHY [None]
  - MULTIPLE DRUG OVERDOSE INTENTIONAL [None]
  - OLIGURIA [None]
  - PULMONARY OEDEMA [None]
